FAERS Safety Report 9307607 (Version 4)
Quarter: 2015Q2

REPORT INFORMATION
  Report Type: Spontaneous
  Country: US (occurrence: US)
  Receive Date: 20130524
  Receipt Date: 20150604
  Transmission Date: 20150821
  Serious: No
  Sender: FDA-Public Use
  Company Number: US-PFIZER INC-2013155945

PATIENT
  Age: 44 Year
  Sex: Female

DRUGS (3)
  1. LIPITOR [Suspect]
     Active Substance: ATORVASTATIN CALCIUM
     Dosage: UNK
  2. BETADINE [Suspect]
     Active Substance: POVIDONE-IODINE
     Dosage: UNK
  3. BENZOIN [Suspect]
     Active Substance: ALOE\BENZOIN\LIQUIDAMBAR STYRACIFLUA RESIN\TOLU BALSAM
     Dosage: UNK

REACTIONS (2)
  - Dermatitis contact [Unknown]
  - Drug hypersensitivity [Unknown]
